FAERS Safety Report 10712967 (Version 3)
Quarter: 2015Q1

REPORT INFORMATION
  Report Type: Spontaneous
  Country: GB (occurrence: GB)
  Receive Date: 20150115
  Receipt Date: 20150219
  Transmission Date: 20150721
  Serious: Yes (Other)
  Sender: FDA-Public Use
  Company Number: PHFR2015GB000648

PATIENT
  Age: 32 Year
  Sex: Male

DRUGS (3)
  1. AMISULPRIDE [Concomitant]
     Active Substance: AMISULPRIDE
     Indication: PSYCHOTIC DISORDER
     Dosage: 200 OT, UNK
     Route: 048
  2. CLOZARIL [Suspect]
     Active Substance: CLOZAPINE
     Indication: SCHIZOPHRENIA
     Dosage: UNK
     Route: 048
     Dates: start: 20070416
  3. CLOZARIL [Suspect]
     Active Substance: CLOZAPINE
     Dosage: 450 OT, DAILY
     Route: 048
     Dates: start: 20140520, end: 201501

REACTIONS (3)
  - Neutropenia [Recovered/Resolved]
  - Influenza like illness [Unknown]
  - White blood cell count decreased [Recovered/Resolved]

NARRATIVE: CASE EVENT DATE: 20150110
